FAERS Safety Report 5722045-1 (Version None)
Quarter: 2008Q2

REPORT INFORMATION
  Report Type: 
  Country: None (occurrence: None)
  Receive Date: 20080429
  Receipt Date: 20080417
  Transmission Date: 20081010
  Serious: Yes (Hospitalization)
  Sender: FDA-Public Use
  Company Number: US-ELI_LILLY_AND_COMPANY-US200804005148

PATIENT
  Age: 66 Year
  Sex: Male

DRUGS (1)
  1. BYETTA [Suspect]
     Dosage: 5 UG, UNKNOWN
     Dates: start: 20071201

REACTIONS (1)
  - PALPITATIONS [None]
